FAERS Safety Report 8027383-8 (Version None)
Quarter: 2012Q1

REPORT INFORMATION
  Report Type: 
  Country: None (occurrence: None)
  Receive Date: 20120106
  Receipt Date: 20111229
  Transmission Date: 20120608
  Serious: Yes (Other)
  Sender: FDA-Public Use
  Company Number: AT-SANOFI-AVENTIS-2011SA084816

PATIENT
  Age: 61 Year
  Sex: Male

DRUGS (6)
  1. RANOLAZINE [Concomitant]
  2. LANITOP [Concomitant]
  3. DIOVAN [Concomitant]
  4. MARCUMAR [Concomitant]
     Dosage: 0.25-0.5 DAILY
     Dates: start: 20040101
  5. BISOPROLOL FUMARATE [Concomitant]
  6. MULTAQ [Suspect]
     Route: 048
     Dates: start: 20100101, end: 20111212

REACTIONS (2)
  - ATRIAL FIBRILLATION [None]
  - BRAIN NATRIURETIC PEPTIDE INCREASED [None]
